FAERS Safety Report 19239661 (Version 1)
Quarter: 2021Q2

REPORT INFORMATION
  Report Type: Spontaneous
  Country: IT (occurrence: IT)
  Receive Date: 20210510
  Receipt Date: 20210510
  Transmission Date: 20210717
  Serious: Yes (Other)
  Sender: FDA-Public Use
  Company Number: NVSC2021IT103153

PATIENT
  Age: 36 Year
  Sex: Male

DRUGS (1)
  1. ZOLPIDEM [Suspect]
     Active Substance: ZOLPIDEM TARTRATE
     Indication: SUBSTANCE USE
     Dosage: 240 MG, QD (AT AVERAGE, I.E., 30 MG, EVERY 3 HOURS)
     Route: 048

REACTIONS (6)
  - Product use in unapproved indication [Unknown]
  - Drug dependence [Unknown]
  - Drug abuse [Unknown]
  - Euphoric mood [Unknown]
  - Sexual inhibition [Unknown]
  - Logorrhoea [Unknown]
